FAERS Safety Report 20056774 (Version 6)
Quarter: 2023Q2

REPORT INFORMATION
  Report Type: Report from Study
  Country: US (occurrence: US)
  Receive Date: 20211111
  Receipt Date: 20230414
  Transmission Date: 20230722
  Serious: Yes (Other)
  Sender: FDA-Public Use
  Company Number: US-NOVARTISPH-NVSC2021US255872

PATIENT
  Sex: Female

DRUGS (1)
  1. COSENTYX [Suspect]
     Active Substance: SECUKINUMAB
     Indication: Psoriasis
     Dosage: 300 MG
     Route: 065

REACTIONS (5)
  - Diabetes mellitus [Recovering/Resolving]
  - Pyrexia [Unknown]
  - Injection site pain [Recovering/Resolving]
  - Psoriasis [Recovering/Resolving]
  - Skin lesion [Recovered/Resolved]
